FAERS Safety Report 15950197 (Version 1)
Quarter: 2019Q1

REPORT INFORMATION
  Report Type: Spontaneous
  Country: US (occurrence: US)
  Receive Date: 20190211
  Receipt Date: 20190211
  Transmission Date: 20190417
  Serious: Yes (Hospitalization)
  Sender: FDA-Public Use
  Company Number: US-OTSUKA-2018_023884

PATIENT

DRUGS (1)
  1. ABILIFY [Suspect]
     Active Substance: ARIPIPRAZOLE
     Indication: PRODUCT USED FOR UNKNOWN INDICATION
     Dosage: UNK
     Route: 065
     Dates: end: 20140730

REACTIONS (7)
  - Mental disorder [Unknown]
  - Divorced [Unknown]
  - Gambling disorder [Unknown]
  - Bankruptcy [Unknown]
  - Economic problem [Unknown]
  - Obsessive-compulsive disorder [Unknown]
  - Loss of employment [Unknown]

NARRATIVE: CASE EVENT DATE: 2004
